FAERS Safety Report 9483985 (Version 2)
Quarter: 2013Q3

REPORT INFORMATION
  Report Type: Spontaneous
  Country: CA (occurrence: CA)
  Receive Date: 20130828
  Receipt Date: 20130828
  Transmission Date: 20140515
  Serious: Yes (Hospitalization, Other)
  Sender: FDA-Public Use
  Company Number: CA-AMGEN-KDL317176

PATIENT
  Age: 56 Year
  Sex: Male

DRUGS (10)
  1. ENBREL [Suspect]
     Indication: ANKYLOSING SPONDYLITIS
     Dosage: 50 MG, QWK
     Route: 058
     Dates: start: 20040827
  2. ENBREL [Suspect]
     Indication: PSORIASIS
  3. ENBREL [Suspect]
     Indication: PSORIATIC ARTHROPATHY
  4. FENTANYL [Concomitant]
     Dosage: UNK UNK, UNK
     Route: 062
     Dates: start: 2003
  5. OXYCODONE HYDROCHLORIDE [Concomitant]
     Dosage: 20 MG, QID
     Route: 048
     Dates: start: 2003
  6. OXYCODONE [Concomitant]
     Dosage: 10 MG, QID
     Dates: start: 2003
  7. LORAZEPAM [Concomitant]
     Dosage: 1 MG, QID
     Route: 048
     Dates: start: 2003
  8. NAPROXEN SODIUM [Concomitant]
     Dosage: 1000 MG, QD
     Route: 048
     Dates: start: 2003
  9. UNSPECIFIED MEDICATION [Concomitant]
  10. ESOMEPRAZOLE MAGNESIUM [Concomitant]

REACTIONS (9)
  - Prostate cancer recurrent [Not Recovered/Not Resolved]
  - Prostatic specific antigen increased [Unknown]
  - Haemoglobin decreased [Not Recovered/Not Resolved]
  - Red blood cell count decreased [Not Recovered/Not Resolved]
  - Pallor [Not Recovered/Not Resolved]
  - Impaired healing [Unknown]
  - Laceration [Unknown]
  - Paraesthesia [Not Recovered/Not Resolved]
  - Lower respiratory tract infection [Unknown]
